FAERS Safety Report 24822152 (Version 4)
Quarter: 2025Q1

REPORT INFORMATION
  Report Type: Spontaneous
  Country: US (occurrence: US)
  Receive Date: 20250108
  Receipt Date: 20250206
  Transmission Date: 20250409
  Serious: Yes (Other)
  Sender: PFIZER
  Company Number: US-PFIZER INC-202500003878

PATIENT
  Age: 68 Year
  Sex: Female

DRUGS (2)
  1. IBRANCE [Suspect]
     Active Substance: PALBOCICLIB
     Indication: Breast cancer metastatic
     Dates: start: 201611
  2. LETROZOLE [Suspect]
     Active Substance: LETROZOLE

REACTIONS (10)
  - Second primary malignancy [Unknown]
  - Thyroid cancer [Unknown]
  - Chronic kidney disease [Unknown]
  - Renal disorder [Not Recovered/Not Resolved]
  - Blood urine present [Unknown]
  - Haemoglobin abnormal [Unknown]
  - Blood cholesterol increased [Unknown]
  - Fatigue [Unknown]
  - Alopecia [Unknown]
  - Blood test abnormal [Unknown]
